FAERS Safety Report 15256902 (Version 2)
Quarter: 2018Q3

REPORT INFORMATION
  Report Type: Spontaneous
  Country: DE (occurrence: DE)
  Receive Date: 20180808
  Receipt Date: 20180902
  Transmission Date: 20181010
  Serious: Yes (Life-Threatening, Hospitalization, Other)
  Sender: FDA-Public Use
  Company Number: DE-B.I. PHARMACEUTICALS,INC./RIDGEFIELD-2018-BI-040074

PATIENT
  Sex: Female
  Weight: 50 kg

DRUGS (9)
  1. SPIRONOLACTON [Concomitant]
     Active Substance: SPIRONOLACTONE
     Indication: PRODUCT USED FOR UNKNOWN INDICATION
     Route: 048
  2. JARDIANCE [Suspect]
     Active Substance: EMPAGLIFLOZIN
     Indication: TYPE 3 DIABETES MELLITUS
     Route: 048
     Dates: start: 20180615, end: 20180630
  3. ALLOPURINOL. [Concomitant]
     Active Substance: ALLOPURINOL
     Indication: PRODUCT USED FOR UNKNOWN INDICATION
     Route: 048
  4. L?THYROXIN [Concomitant]
     Active Substance: LEVOTHYROXINE SODIUM
     Indication: PRODUCT USED FOR UNKNOWN INDICATION
     Route: 048
  5. METFORMIN [Concomitant]
     Active Substance: METFORMIN HYDROCHLORIDE
     Indication: DIABETES MELLITUS
     Route: 048
  6. OBSIDAN [Concomitant]
     Indication: PRODUCT USED FOR UNKNOWN INDICATION
     Route: 048
  7. ATORVASTATIN [Concomitant]
     Active Substance: ATORVASTATIN
     Indication: PRODUCT USED FOR UNKNOWN INDICATION
     Route: 048
  8. FERROSANOL [Concomitant]
     Active Substance: FERROUS GLUCONATE
     Indication: PRODUCT USED FOR UNKNOWN INDICATION
     Route: 048
  9. PANTOPRAZOL [Concomitant]
     Active Substance: PANTOPRAZOLE SODIUM
     Indication: PRODUCT USED FOR UNKNOWN INDICATION
     Route: 065

REACTIONS (23)
  - Off label use [Unknown]
  - Dyspnoea [Unknown]
  - Altered state of consciousness [Unknown]
  - Respiratory muscle weakness [Unknown]
  - Lung infiltration [Unknown]
  - Pneumonia klebsiella [Unknown]
  - Retinal disorder [Unknown]
  - Vocal cord paralysis [Unknown]
  - Cerebellar atrophy [Unknown]
  - Acute respiratory distress syndrome [Unknown]
  - General physical condition abnormal [Unknown]
  - Arteriosclerosis [Unknown]
  - Herpes zoster [Unknown]
  - Pneumonia [Unknown]
  - Acidosis hyperchloraemic [Recovered/Resolved]
  - Pulmonary sepsis [Unknown]
  - Unresponsive to stimuli [Unknown]
  - Intensive care unit acquired weakness [Unknown]
  - Rales [Unknown]
  - Nasal obstruction [Unknown]
  - Hyperchromic anaemia [Unknown]
  - Hypernatraemia [Unknown]
  - Dysphagia [Unknown]
